FAERS Safety Report 14600422 (Version 1)
Quarter: 2018Q1

REPORT INFORMATION
  Report Type: Spontaneous
  Country: PT (occurrence: PT)
  Receive Date: 20180305
  Receipt Date: 20180305
  Transmission Date: 20180509
  Serious: Yes (Other)
  Sender: FDA-Public Use
  Company Number: PT-GLAXOSMITHKLINE-PT2018032331

PATIENT
  Age: 39 Year
  Sex: Female
  Weight: 86.5 kg

DRUGS (1)
  1. SALBUTAMOL [Suspect]
     Active Substance: ALBUTEROL
     Indication: BRONCHOPULMONARY DISEASE
     Dosage: 5MCG / MIN CONTINUOUS INFUSION IV
     Route: 042
     Dates: start: 20180127, end: 20180128

REACTIONS (1)
  - Lactic acidosis [Recovered/Resolved]

NARRATIVE: CASE EVENT DATE: 20180127
